FAERS Safety Report 6977448-4 (Version None)
Quarter: 2010Q3

REPORT INFORMATION
  Report Type: 
  Country: None (occurrence: None)
  Receive Date: 20100910
  Receipt Date: 20100901
  Transmission Date: 20110219
  Serious: Yes (Death)
  Sender: FDA-Public Use
  Company Number: PR-ABBOTT-10P-131-0667476-01

PATIENT
  Sex: Male

DRUGS (17)
  1. KALETRA [Suspect]
     Indication: HIV INFECTION
     Dosage: 400/100MG
     Route: 048
     Dates: start: 20081016, end: 20100817
  2. ISENTRESS [Suspect]
     Indication: HIV INFECTION
     Route: 048
     Dates: start: 20081016, end: 20100817
  3. ACYCLOVIR SODIUM [Concomitant]
     Indication: PRODUCT USED FOR UNKNOWN INDICATION
  4. FLUCONAZOLE [Concomitant]
     Indication: PRODUCT USED FOR UNKNOWN INDICATION
  5. ENSURE [Concomitant]
     Indication: PRODUCT USED FOR UNKNOWN INDICATION
  6. MULTIVITAMINES AND MINERALS [Concomitant]
     Indication: PRODUCT USED FOR UNKNOWN INDICATION
  7. AMINO ACIDS/CARBOHYDRATES/MINERALS/VITAMINS, [Concomitant]
     Indication: PRODUCT USED FOR UNKNOWN INDICATION
  8. BACTRIM [Concomitant]
     Indication: PRODUCT USED FOR UNKNOWN INDICATION
  9. BACTRIM [Concomitant]
  10. LEVOTHYROXINE SODIUM [Concomitant]
     Indication: HYPOTHYROIDISM
  11. LEVOTHYROXINE SODIUM [Concomitant]
     Dates: start: 20090120
  12. PHENYTOIN [Concomitant]
     Indication: PRODUCT USED FOR UNKNOWN INDICATION
  13. LAMICTAL [Concomitant]
     Indication: CONVULSION
     Dates: start: 20090228, end: 20090709
  14. LAMICTAL [Concomitant]
     Indication: GRAND MAL CONVULSION
     Dates: start: 20090710, end: 20100424
  15. LAMICTAL [Concomitant]
     Dates: start: 20100425, end: 20100525
  16. LAMICTAL [Concomitant]
     Dates: start: 20100526
  17. KEPPRA [Concomitant]
     Indication: CONVULSION
     Dates: start: 20100526

REACTIONS (1)
  - SUBARACHNOID HAEMORRHAGE [None]
